FAERS Safety Report 25984871 (Version 1)
Quarter: 2025Q4

REPORT INFORMATION
  Report Type: Spontaneous
  Country: US (occurrence: US)
  Receive Date: 20251031
  Receipt Date: 20251031
  Transmission Date: 20260118
  Serious: Yes (Other)
  Sender: XERIS PHARMACEUTICALS
  Company Number: US-BRIAN CONNER SVP QUALITY AND CHIEF COMPLIANCE OFFICER-2025XER00059

PATIENT
  Age: 56 Year
  Sex: Female

DRUGS (1)
  1. RECORLEV [Suspect]
     Active Substance: LEVOKETOCONAZOLE
     Indication: Cushing^s syndrome
     Dosage: 1 TABLET (150 MG), 2X/DAY
     Route: 048
     Dates: start: 20250117

REACTIONS (18)
  - Lung neoplasm malignant [Unknown]
  - Pneumonia [Unknown]
  - Aspiration [Unknown]
  - Influenza like illness [Recovering/Resolving]
  - Sinus disorder [Recovering/Resolving]
  - Nasal congestion [Recovering/Resolving]
  - Respiratory tract congestion [Recovering/Resolving]
  - Sneezing [Recovering/Resolving]
  - Dyspnoea [Recovering/Resolving]
  - Weight decreased [Not Recovered/Not Resolved]
  - Blood pressure decreased [Not Recovered/Not Resolved]
  - Inflammation [Not Recovered/Not Resolved]
  - Nausea [Recovering/Resolving]
  - Fatigue [Recovering/Resolving]
  - Headache [Recovering/Resolving]
  - Pain [Recovering/Resolving]
  - Insomnia [Not Recovered/Not Resolved]
  - Product dose omission issue [Unknown]

NARRATIVE: CASE EVENT DATE: 20250101
